FAERS Safety Report 17571900 (Version 1)
Quarter: 2020Q1

REPORT INFORMATION
  Report Type: Spontaneous
  Country: US (occurrence: US)
  Receive Date: 20200323
  Receipt Date: 20200323
  Transmission Date: 20200409
  Serious: Yes (Other)
  Sender: FDA-Public Use
  Company Number: US-OXFORD PHARMACEUTICALS, LLC-2020OXF00040

PATIENT
  Age: 65 Year
  Sex: Male

DRUGS (3)
  1. VALPROIC ACID. [Concomitant]
     Active Substance: VALPROIC ACID
     Route: 065
  2. SERTRALINE HYDROCHLORIDE. [Suspect]
     Active Substance: SERTRALINE HYDROCHLORIDE
     Route: 065
  3. LAMOTRIGINE. [Suspect]
     Active Substance: LAMOTRIGINE
     Route: 065

REACTIONS (2)
  - Drug interaction [Unknown]
  - Delirium [Unknown]
